FAERS Safety Report 13387670 (Version 3)
Quarter: 2017Q2

REPORT INFORMATION
  Report Type: Report from Study
  Country: US (occurrence: US)
  Receive Date: 20170330
  Receipt Date: 20170519
  Transmission Date: 20170830
  Serious: Yes (Death, Hospitalization)
  Sender: FDA-Public Use
  Company Number: US-ACTELION-A-NJ2017-151457

PATIENT
  Age: 76 Year
  Sex: Female

DRUGS (12)
  1. FUROSEMIDE. [Concomitant]
     Active Substance: FUROSEMIDE
  2. B COMPLEX WITH FOLIC ACID [Concomitant]
  3. CALCIUM [Concomitant]
     Active Substance: CALCIUM
  4. HYDRALAZINE [Concomitant]
     Active Substance: HYDRALAZINE HYDROCHLORIDE
  5. METOPROLOL SUCCINATE. [Concomitant]
     Active Substance: METOPROLOL SUCCINATE
  6. ALPRAZOLAM. [Concomitant]
     Active Substance: ALPRAZOLAM
  7. ATORVASTATIN [Concomitant]
     Active Substance: ATORVASTATIN
  8. JANTOVEN [Concomitant]
     Active Substance: WARFARIN SODIUM
  9. OPSUMIT [Suspect]
     Active Substance: MACITENTAN
     Indication: PULMONARY ARTERIAL HYPERTENSION
     Dosage: 10 MG, QD
     Route: 048
  10. URSODIOL. [Concomitant]
     Active Substance: URSODIOL
  11. LANTUS [Concomitant]
     Active Substance: INSULIN GLARGINE
  12. TRAMADOL. [Concomitant]
     Active Substance: TRAMADOL

REACTIONS (7)
  - Pulmonary oedema [Unknown]
  - Dyspnoea [Unknown]
  - Respiratory failure [Fatal]
  - Nephropathy [Fatal]
  - Gangrene [Unknown]
  - Fluid overload [Unknown]
  - Pain in extremity [Unknown]
